FAERS Safety Report 6483268-X (Version None)
Quarter: 2009Q4

REPORT INFORMATION
  Report Type: 
  Country: None (occurrence: None)
  Receive Date: 20091209
  Receipt Date: 20091204
  Transmission Date: 20100525
  Serious: Yes (Hospitalization, Other)
  Sender: FDA-Public Use
  Company Number: AT-BAYER-200936180GPV

PATIENT
  Age: 63 Year
  Sex: Male
  Weight: 72 kg

DRUGS (10)
  1. SORAFENIB [Suspect]
     Indication: HEPATIC NEOPLASM MALIGNANT
     Dosage: TOTAL DAILY DOSE: 800 MG
     Route: 048
     Dates: start: 20090914, end: 20091013
  2. DALACIN [Concomitant]
     Indication: PALMAR-PLANTAR ERYTHRODYSAESTHESIA SYNDROME
     Route: 048
     Dates: start: 20091003, end: 20091008
  3. SELOKEN [Concomitant]
     Indication: HYPERTENSION
     Dates: start: 20090708
  4. BAYPRESS [Concomitant]
     Indication: HYPERTENSION
     Dates: start: 20090708
  5. TRITAZIDE [Concomitant]
     Indication: HYPERTENSION
     Dates: start: 20090708
  6. TRITACE [Concomitant]
     Indication: HYPERTENSION
     Dates: start: 20090708
  7. ALLOPURINOL [Concomitant]
     Indication: HYPERURICAEMIA
     Dates: start: 20090708
  8. PANTALOC [Concomitant]
     Indication: GASTRITIS
     Dates: start: 20090708
  9. BERODUAL [Concomitant]
     Indication: CHRONIC OBSTRUCTIVE PULMONARY DISEASE
     Dates: start: 20090708
  10. SPIRIVA [Concomitant]
     Indication: CHRONIC OBSTRUCTIVE PULMONARY DISEASE
     Dates: start: 20090708

REACTIONS (3)
  - CHRONIC OBSTRUCTIVE PULMONARY DISEASE [None]
  - PALMAR-PLANTAR ERYTHRODYSAESTHESIA SYNDROME [None]
  - RASH [None]
